FAERS Safety Report 9723380 (Version 1)
Quarter: 2013Q4

REPORT INFORMATION
  Report Type: Spontaneous
  Country: US (occurrence: US)
  Receive Date: 20131202
  Receipt Date: 20131202
  Transmission Date: 20140711
  Serious: No
  Sender: FDA-Public Use
  Company Number: US-GLAXOSMITHKLINE-A1044934A

PATIENT
  Sex: Female

DRUGS (1)
  1. FLOVENT [Suspect]
     Indication: PRODUCT USED FOR UNKNOWN INDICATION
     Dosage: 110MCG UNKNOWN
     Route: 055

REACTIONS (1)
  - Expired drug administered [Not Recovered/Not Resolved]
